FAERS Safety Report 5301521-X (Version None)
Quarter: 2007Q2

REPORT INFORMATION
  Report Type: 
  Country: None (occurrence: None)
  Receive Date: 20070412
  Receipt Date: 20070328
  Transmission Date: 20071010
  Serious: Yes (Hospitalization)
  Sender: FDA-Public Use
  Company Number: 237720

PATIENT
  Age: 68 Year
  Sex: Male

DRUGS (2)
  1. RAPTIVA [Suspect]
     Indication: PSORIASIS
     Dosage: 1 ML, 1/WEEK, SUBCUTANEOUS
     Route: 058
     Dates: start: 20060921, end: 20070222
  2. ASPIRIN [Concomitant]

REACTIONS (9)
  - ASTHENIA [None]
  - CEREBRAL HAEMORRHAGE [None]
  - CONFUSIONAL STATE [None]
  - COORDINATION ABNORMAL [None]
  - FACIAL PARESIS [None]
  - GAIT DISTURBANCE [None]
  - HEADACHE [None]
  - SPEECH DISORDER [None]
  - SUBDURAL HAEMATOMA [None]
